FAERS Safety Report 25978868 (Version 1)
Quarter: 2025Q4

REPORT INFORMATION
  Report Type: Spontaneous
  Country: US (occurrence: US)
  Receive Date: 20251030
  Receipt Date: 20251030
  Transmission Date: 20260117
  Serious: No
  Sender: RANBAXY
  Company Number: US-MIMS-SUN-2025-USA-55326

PATIENT
  Sex: Female

DRUGS (1)
  1. PHENYTOIN [Suspect]
     Active Substance: PHENYTOIN
     Indication: Product used for unknown indication
     Dosage: 500 MILLIGRAM, DAILY
     Route: 048
     Dates: start: 2013

REACTIONS (4)
  - Malaise [Unknown]
  - Burning sensation [Unknown]
  - Peripheral swelling [Unknown]
  - Product label issue [Unknown]

NARRATIVE: CASE EVENT DATE: 20240101
